FAERS Safety Report 4963450-0 (Version None)
Quarter: 2006Q2

REPORT INFORMATION
  Report Type: 
  Country: None (occurrence: None)
  Receive Date: 20060404
  Receipt Date: 20060404
  Transmission Date: 20061013
  Serious: Yes (Hospitalization)
  Sender: FDA-Public Use
  Company Number: None

PATIENT
  Age: 85 Year
  Sex: Male
  Weight: 61.6892 kg

DRUGS (1)
  1. FUROSEMIDE [Suspect]
     Indication: HYPERTENSION
     Dosage: 10 MG PO QD
     Route: 048

REACTIONS (5)
  - DIARRHOEA [None]
  - HYPONATRAEMIA [None]
  - MENTAL STATUS CHANGES [None]
  - ORAL INTAKE REDUCED [None]
  - VOMITING [None]
